FAERS Safety Report 16530030 (Version 2)
Quarter: 2020Q4

REPORT INFORMATION
  Report Type: Spontaneous
  Country: BR (occurrence: BR)
  Receive Date: 20190704
  Receipt Date: 20201108
  Transmission Date: 20210113
  Serious: Yes (Hospitalization, Other)
  Sender: FDA-Public Use
  Company Number: BR-JNJFOC-20190622583

PATIENT
  Sex: Male

DRUGS (1)
  1. STELARA [Suspect]
     Active Substance: USTEKINUMAB
     Indication: PSORIASIS
     Route: 058

REACTIONS (3)
  - Hospitalisation [Unknown]
  - Adverse event [Unknown]
  - Psoriasis [Not Recovered/Not Resolved]
